FAERS Safety Report 18545492 (Version 1)
Quarter: 2020Q4

REPORT INFORMATION
  Report Type: Spontaneous
  Country: US (occurrence: US)
  Receive Date: 20201125
  Receipt Date: 20201125
  Transmission Date: 20210114
  Serious: Yes (Hospitalization, Other)
  Sender: FDA-Public Use
  Company Number: US-ELI_LILLY_AND_COMPANY-US202011006413

PATIENT
  Sex: Male

DRUGS (1)
  1. HUMALOG KWIKPEN [Suspect]
     Active Substance: INSULIN LISPRO
     Indication: DIABETES MELLITUS
     Dosage: 8 U, PRN
     Route: 058
     Dates: start: 2015

REACTIONS (6)
  - Cerebrovascular accident [Recovered/Resolved]
  - Hallucination [Not Recovered/Not Resolved]
  - Product dose omission issue [Unknown]
  - Accidental underdose [Unknown]
  - Dementia with Lewy bodies [Not Recovered/Not Resolved]
  - Psychotic disorder [Recovered/Resolved]

NARRATIVE: CASE EVENT DATE: 2017
